FAERS Safety Report 17356088 (Version 4)
Quarter: 2020Q2

REPORT INFORMATION
  Report Type: Report from Study
  Country: US (occurrence: US)
  Receive Date: 20200131
  Receipt Date: 20200519
  Transmission Date: 20200713
  Serious: No
  Sender: FDA-Public Use
  Company Number: NVSC2020US025076

PATIENT
  Sex: Female

DRUGS (2)
  1. COSENTYX [Suspect]
     Active Substance: SECUKINUMAB
     Indication: PSORIATIC ARTHROPATHY
     Dosage: 300 MG, QW
     Route: 058
     Dates: start: 2020
  2. COSENTYX [Suspect]
     Active Substance: SECUKINUMAB
     Indication: PSORIASIS
     Dosage: 300 MG, QW
     Route: 058
     Dates: start: 20200122

REACTIONS (14)
  - Rhinorrhoea [Unknown]
  - Psoriasis [Recovering/Resolving]
  - Injection site bruising [Recovering/Resolving]
  - Burning sensation [Recovering/Resolving]
  - Nasopharyngitis [Unknown]
  - Concomitant disease aggravated [Unknown]
  - Pain in extremity [Unknown]
  - Sneezing [Unknown]
  - Skin fissures [Recovering/Resolving]
  - Ear discomfort [Unknown]
  - Inflammation [Unknown]
  - Oropharyngeal pain [Unknown]
  - Malaise [Unknown]
  - Peripheral swelling [Unknown]
